FAERS Safety Report 20161904 (Version 2)
Quarter: 2022Q1

REPORT INFORMATION
  Report Type: Spontaneous
  Country: US (occurrence: US)
  Receive Date: 20211208
  Receipt Date: 20220121
  Transmission Date: 20220423
  Serious: No
  Sender: FDA-Public Use
  Company Number: US-PFIZER INC-202101549628

PATIENT
  Age: 47 Year
  Sex: Male

DRUGS (3)
  1. METHOTREXATE SODIUM [Suspect]
     Active Substance: METHOTREXATE SODIUM
     Indication: Rheumatoid arthritis
     Dosage: UNK, WEEKLY (FOUR A WEEK)
  2. HYDROXYCHLOROQUINE [Suspect]
     Active Substance: HYDROXYCHLOROQUINE
     Indication: Rheumatoid arthritis
     Dosage: UNK
  3. PREDNISONE [Suspect]
     Active Substance: PREDNISONE
     Indication: Rheumatoid arthritis
     Dosage: UNK

REACTIONS (18)
  - Drug ineffective [Unknown]
  - Arthritis [Unknown]
  - Pain [Unknown]
  - Arthralgia [Unknown]
  - Loss of personal independence in daily activities [Unknown]
  - Discomfort [Unknown]
  - Insomnia [Unknown]
  - Sleep deficit [Unknown]
  - Nausea [Unknown]
  - Rheumatoid factor increased [Unknown]
  - Anti-cyclic citrullinated peptide antibody positive [Unknown]
  - Daydreaming [Unknown]
  - Fatigue [Unknown]
  - Musculoskeletal stiffness [Unknown]
  - Joint swelling [Unknown]
  - Feeling abnormal [Unknown]
  - Illness [Unknown]
  - Condition aggravated [Unknown]
